FAERS Safety Report 7617804-4 (Version None)
Quarter: 2011Q3

REPORT INFORMATION
  Report Type: 
  Country: None (occurrence: None)
  Receive Date: 20110718
  Receipt Date: 20110713
  Transmission Date: 20111222
  Serious: Yes (Death, Other)
  Sender: FDA-Public Use
  Company Number: US-AMGEN-QUU408044

PATIENT
  Age: 51 Year
  Sex: Male

DRUGS (1)
  1. NPLATE [Suspect]
     Indication: IDIOPATHIC THROMBOCYTOPENIC PURPURA
     Dates: start: 20090106

REACTIONS (4)
  - DEATH [None]
  - BIOPSY BONE MARROW ABNORMAL [None]
  - BONE MARROW RETICULIN FIBROSIS [None]
  - INFECTION [None]
